FAERS Safety Report 8102554-0 (Version None)
Quarter: 2012Q1

REPORT INFORMATION
  Report Type: 
  Country: None (occurrence: None)
  Receive Date: 20120126
  Receipt Date: 20120114
  Transmission Date: 20120608
  Serious: Yes (Other)
  Sender: FDA-Public Use
  Company Number: 2012AP000108

PATIENT
  Age: 67 Year
  Sex: Male

DRUGS (9)
  1. QUINAPRIL HCL [Suspect]
     Indication: PRODUCT USED FOR UNKNOWN INDICATION
  2. IRON [Concomitant]
  3. ERLOTINIB HYDROCHLORIDE [Concomitant]
  4. METFORMIN HCL [Concomitant]
  5. GLIBENCLAMIDE [Concomitant]
  6. CARBOPLATIN [Concomitant]
  7. PEMETREXED [Suspect]
     Indication: NON-SMALL CELL LUNG CANCER
     Dosage: 500 MG/M**2; 375 MG/M**2
  8. FOLIC ACID [Concomitant]
  9. PACLITAXEL [Concomitant]

REACTIONS (5)
  - GLYCOSURIA [None]
  - ANAEMIA [None]
  - NEPHROPATHY TOXIC [None]
  - RENAL TUBULAR DISORDER [None]
  - RENAL INJURY [None]
